FAERS Safety Report 4965247-4 (Version None)
Quarter: 2006Q1

REPORT INFORMATION
  Report Type: 
  Country: None (occurrence: None)
  Receive Date: 20060201
  Receipt Date: 20051214
  Transmission Date: 20060701
  Serious: No
  Sender: FDA-Public Use
  Company Number: 2005PV005861

PATIENT
  Age: 58 Year
  Sex: Female
  Weight: 81.6475 kg

DRUGS (5)
  1. BYETTA [Suspect]
     Indication: DIABETES MELLITUS
     Dosage: 10 + 5 MCG; BID; SC
     Route: 058
     Dates: start: 20050701, end: 20050101
  2. BYETTA [Suspect]
     Indication: DIABETES MELLITUS
     Dosage: 10 + 5 MCG; BID; SC
     Route: 058
     Dates: start: 20050101
  3. OMEPRAZOLE [Suspect]
     Dosage: 20 MG; PRN; PO
     Route: 048
  4. AVANDAMET [Concomitant]
  5. OMEPRAZOLE [Concomitant]

REACTIONS (3)
  - ASTHENIA [None]
  - ERUCTATION [None]
  - NAUSEA [None]
